FAERS Safety Report 24680353 (Version 1)
Quarter: 2024Q4

REPORT INFORMATION
  Report Type: Spontaneous
  Country: DK (occurrence: DK)
  Receive Date: 20241129
  Receipt Date: 20241129
  Transmission Date: 20250115
  Serious: Yes (Other)
  Sender: BAXTER
  Company Number: DK-BAXTER-2024BAX028656

PATIENT
  Age: 54 Year
  Sex: Female

DRUGS (4)
  1. CYCLOPHOSPHAMIDE [Suspect]
     Active Substance: CYCLOPHOSPHAMIDE
     Indication: Breast cancer
     Dosage: 4 CYCLES (12 WEEKLY TREATMENTS),  NEOADJUVANT CHEMOTHERAPY, STOP DATE: DEC-2019
     Route: 065
  2. EPIRUBICIN [Suspect]
     Active Substance: EPIRUBICIN
     Indication: Breast cancer
     Dosage: 4 CYCLES (12 WEEKLY TREATMENTS),  NEOADJUVANT CHEMOTHERAPY, STOP DATE: DEC-2019
     Route: 065
  3. PACLITAXEL [Suspect]
     Active Substance: PACLITAXEL
     Indication: Breast cancer
     Dosage: 4 CYCLES (12 WEEKLY TREATMENTS),  NEOADJUVANT CHEMOTHERAPY, STOP DATE: DEC-2019
     Route: 065
  4. TAMOXIFEN [Suspect]
     Active Substance: TAMOXIFEN
     Dosage: UNK
     Route: 065
     Dates: start: 20200109, end: 20200814

REACTIONS (9)
  - Hypogammaglobulinaemia [Unknown]
  - Nephrotic syndrome [Unknown]
  - Oedema [Unknown]
  - Hypercholesterolaemia [Unknown]
  - Focal segmental glomerulosclerosis [Unknown]
  - Lymphoedema [Unknown]
  - Discomfort [Unknown]
  - Hypertension [Unknown]
  - Pain [Unknown]
